FAERS Safety Report 15278992 (Version 2)
Quarter: 2018Q4

REPORT INFORMATION
  Report Type: Spontaneous
  Country: GB (occurrence: GB)
  Receive Date: 20180815
  Receipt Date: 20181228
  Transmission Date: 20190204
  Serious: Yes (Death, Life-Threatening, Hospitalization, Other)
  Sender: FDA-Public Use
  Company Number: GB-TAKEDA-2018MPI010318

PATIENT
  Age: 78 Year
  Sex: Female
  Weight: 80 kg

DRUGS (6)
  1. DARATUMUMAB [Concomitant]
     Active Substance: DARATUMUMAB
     Indication: PLASMA CELL MYELOMA
     Dosage: UNK
     Route: 065
  2. DEXAMETHASONE. [Concomitant]
     Active Substance: DEXAMETHASONE
     Indication: PLASMA CELL MYELOMA
     Dosage: UNK
     Route: 065
  3. MELPHALAN. [Concomitant]
     Active Substance: MELPHALAN
     Indication: PLASMA CELL MYELOMA
     Dosage: UNK
     Route: 065
  4. PREDNISONE. [Concomitant]
     Active Substance: PREDNISONE
     Indication: PLASMA CELL MYELOMA
     Dosage: UNK
     Route: 065
  5. LENALIDOMIDE [Concomitant]
     Active Substance: LENALIDOMIDE
     Indication: PLASMA CELL MYELOMA
     Dosage: UNK
     Route: 065
  6. BORTEZOMIB. [Suspect]
     Active Substance: BORTEZOMIB
     Indication: PLASMA CELL MYELOMA
     Dosage: UNK
     Route: 065

REACTIONS (4)
  - Pulmonary oedema [Unknown]
  - Myocardial infarction [Fatal]
  - Acute kidney injury [Unknown]
  - Sepsis [Unknown]

NARRATIVE: CASE EVENT DATE: 201807
